FAERS Safety Report 6426726-6 (Version None)
Quarter: 2009Q4

REPORT INFORMATION
  Report Type: 
  Country: None (occurrence: None)
  Receive Date: 20091027
  Receipt Date: 20091013
  Transmission Date: 20100525
  Serious: Yes (Hospitalization)
  Sender: FDA-Public Use
  Company Number: WAES 0908USA00752

PATIENT
  Age: 46 Year
  Sex: Male

DRUGS (10)
  1. ISENTRESS [Suspect]
     Indication: HIV INFECTION
     Dosage: 400 MG/BID;PO
     Route: 048
     Dates: start: 20080903
  2. TAB TMC-125 (ETRAVIRINE) [Suspect]
     Indication: HIV INFECTION
     Dosage: 2 DOSE, BID, PO
     Route: 048
     Dates: start: 20070718
  3. TAB TMC-114 (DARUNAVIR) [Suspect]
     Indication: HIV INFECTION
     Dosage: 600 MG/BID, PO
     Route: 048
     Dates: start: 20070718
  4. RITONAVIR [Suspect]
     Indication: HIV INFECTION
     Dosage: 100 MG, BID; PO
     Route: 048
     Dates: start: 20070718
  5. COMBIVIR [Suspect]
     Indication: HIV INFECTION
     Dosage: 1 DOSE, BID; PO
     Route: 048
  6. BACTRIM [Concomitant]
  7. CYANOCOBALAMIN [Concomitant]
  8. DICLOFENAC [Concomitant]
  9. PYRIDOXINE [Concomitant]
  10. THIAMINE [Concomitant]

REACTIONS (1)
  - MESENTERIC VEIN THROMBOSIS [None]
